FAERS Safety Report 18307570 (Version 1)
Quarter: 2020Q3

REPORT INFORMATION
  Report Type: Spontaneous
  Country: FR (occurrence: FR)
  Receive Date: 20200924
  Receipt Date: 20200924
  Transmission Date: 20201103
  Serious: Yes (Hospitalization)
  Sender: FDA-Public Use
  Company Number: FR-BAYER-2020-202364

PATIENT
  Age: 77 Year
  Sex: Female

DRUGS (1)
  1. CLARITINE 10 MG [Suspect]
     Active Substance: LORATADINE
     Indication: HYPERSENSITIVITY
     Dosage: UNK

REACTIONS (4)
  - Fatigue [None]
  - Fall [None]
  - Tremor [None]
  - Somnolence [None]
